FAERS Safety Report 4810405-2 (Version None)
Quarter: 2005Q4

REPORT INFORMATION
  Report Type: 
  Country: None (occurrence: None)
  Receive Date: 20051024
  Receipt Date: 20051011
  Transmission Date: 20060501
  Serious: Yes (Death, Other)
  Sender: FDA-Public Use
  Company Number: 2005137021

PATIENT
  Age: 15 Year
  Sex: Male

DRUGS (2)
  1. VORICONAZOLE (VORICONAZOLE) [Suspect]
     Indication: LUNG DISORDER
  2. CASPOFUNGIN (CASPOFUNGIN) [Suspect]
     Indication: LUNG DISORDER
     Dosage: INTRAVENOUS
     Route: 042

REACTIONS (7)
  - AUTOIMMUNE HEPATITIS [None]
  - CHOLANGITIS [None]
  - DRUG INEFFECTIVE [None]
  - HAEMOPTYSIS [None]
  - LUNG DISORDER [None]
  - PNEUMOTHORAX [None]
  - RESPIRATORY FAILURE [None]
